FAERS Safety Report 4634284-1 (Version None)
Quarter: 2005Q2

REPORT INFORMATION
  Report Type: 
  Country: None (occurrence: None)
  Receive Date: 20050413
  Receipt Date: 20050322
  Transmission Date: 20051028
  Serious: Yes (Death, Hospitalization, Other)
  Sender: FDA-Public Use
  Company Number: PHBS2005JP04237

PATIENT
  Age: 23 Year
  Sex: Female
  Weight: 62 kg

DRUGS (9)
  1. NEORAL [Suspect]
     Indication: LIVER TRANSPLANT
     Dosage: 100 MG/D
     Route: 048
     Dates: start: 20050202
  2. NEORAL [Suspect]
     Dosage: 175 MG/D
     Route: 048
     Dates: end: 20050320
  3. PROGRAF [Suspect]
     Indication: LIVER TRANSPLANT
     Dosage: 0.15 MG/D
     Route: 042
     Dates: start: 20050125
  4. PROGRAF [Suspect]
     Dosage: 1.2 MG/D
     Route: 042
     Dates: end: 20050131
  5. PRODIF [Suspect]
     Dosage: 50 MG/D
     Route: 042
     Dates: start: 20050119
  6. PRODIF [Suspect]
     Dosage: 400 MG/D
     Route: 042
     Dates: end: 20050128
  7. SOLU-MEDROL [Concomitant]
     Dosage: 120 MG/D
     Route: 042
     Dates: start: 20050125, end: 20050219
  8. SOLU-MEDROL [Concomitant]
     Dosage: 500-1000 MG/D
     Route: 042
     Dates: start: 20050202, end: 20050208
  9. PREDNISOLONE [Concomitant]
     Dosage: 10 MG/D
     Route: 048
     Dates: start: 20050220, end: 20050322

REACTIONS (12)
  - COAGULOPATHY [None]
  - DRUG INTERACTION [None]
  - DRUG LEVEL INCREASED [None]
  - GASTROINTESTINAL PERFORATION [None]
  - HEPATIC FAILURE [None]
  - HYPERAMMONAEMIA [None]
  - LIVER TRANSPLANT REJECTION [None]
  - PROTHROMBIN TIME ABNORMAL [None]
  - PROTHROMBIN TIME PROLONGED [None]
  - RENAL IMPAIRMENT [None]
  - SURGERY [None]
  - THROMBOTIC THROMBOCYTOPENIC PURPURA [None]
